FAERS Safety Report 11836382 (Version 2)
Quarter: 2015Q4

REPORT INFORMATION
  Report Type: Spontaneous
  Country: PL (occurrence: PL)
  Receive Date: 20151215
  Receipt Date: 20151221
  Transmission Date: 20160305
  Serious: Yes (Death)
  Sender: FDA-Public Use
  Company Number: PL-ABBVIE-15P-129-1518130-00

PATIENT
  Sex: Male
  Weight: 120 kg

DRUGS (3)
  1. VIEKIRAX [Suspect]
     Active Substance: OMBITASVIR\PARITAPREVIR\RITONAVIR
     Indication: HEPATITIS C
     Dosage: 25/150/50 MG 2-0-0
     Route: 048
     Dates: start: 20151112, end: 20151121
  2. PROPRANOLOL [Concomitant]
     Active Substance: PROPRANOLOL\PROPRANOLOL HYDROCHLORIDE
     Indication: PORTAL HYPERTENSION
     Route: 048
     Dates: start: 20150928, end: 20151121
  3. EXVIERA [Suspect]
     Active Substance: DASABUVIR
     Indication: HEPATITIS C
     Dosage: 1-0-1
     Route: 048
     Dates: start: 20151112, end: 20151121

REACTIONS (1)
  - Haemorrhagic stroke [Fatal]
